FAERS Safety Report 8564522-4 (Version None)
Quarter: 2012Q3

REPORT INFORMATION
  Report Type: 
  Country: None (occurrence: None)
  Receive Date: 20120803
  Receipt Date: 20120725
  Transmission Date: 20120928
  Serious: Yes (Hospitalization)
  Sender: FDA-Public Use
  Company Number: CA-BRISTOL-MYERS SQUIBB COMPANY-16835415

PATIENT
  Age: 38 Year
  Sex: Male

DRUGS (2)
  1. ABILIFY [Suspect]
  2. OLANZAPINE [Suspect]

REACTIONS (1)
  - PSYCHOTIC DISORDER [None]
